FAERS Safety Report 18318539 (Version 1)
Quarter: 2020Q3

REPORT INFORMATION
  Report Type: Spontaneous
  Country: US (occurrence: US)
  Receive Date: 20200926
  Receipt Date: 20200926
  Transmission Date: 20201103
  Serious: No
  Sender: FDA-Public Use
  Company Number: None

PATIENT
  Age: 41 Year
  Sex: Female
  Weight: 63 kg

DRUGS (6)
  1. NIKKI [Concomitant]
     Active Substance: DROSPIRENONE\ETHINYL ESTRADIOL
  2. NITROFURANTOIN. [Concomitant]
     Active Substance: NITROFURANTOIN
  3. MIRTAZAPINE 15 MG ODT [Suspect]
     Active Substance: MIRTAZAPINE
     Indication: INSOMNIA
     Route: 048
     Dates: start: 20200925, end: 20200925
  4. AMBIEN [Concomitant]
     Active Substance: ZOLPIDEM TARTRATE
  5. DIAZEPAM. [Concomitant]
     Active Substance: DIAZEPAM
  6. SODIUM NAPROXEN [Concomitant]

REACTIONS (4)
  - Dyspnoea [None]
  - Retching [None]
  - Chest discomfort [None]
  - Nausea [None]

NARRATIVE: CASE EVENT DATE: 20200926
